FAERS Safety Report 6402030-7 (Version None)
Quarter: 2009Q4

REPORT INFORMATION
  Report Type: 
  Country: None (occurrence: None)
  Receive Date: 20091015
  Receipt Date: 20090406
  Transmission Date: 20100525
  Serious: No
  Sender: FDA-Public Use
  Company Number: US-B.I. PHARMACEUTICALS,INC./RIDGEFIELD-2009-BP-04244BP

PATIENT
  Sex: Female

DRUGS (13)
  1. PERSANTINE [Suspect]
     Indication: CARDIAC STRESS TEST
     Route: 042
     Dates: start: 20090206
  2. NATEGLINIDE [Suspect]
     Indication: GLUCOSE TOLERANCE IMPAIRED
     Dosage: 160 MG
     Route: 065
     Dates: start: 20020411
  3. VALSARTAN [Suspect]
     Indication: CARDIOVASCULAR DISORDER
     Dosage: 80 MG
     Route: 065
     Dates: start: 20020411
  4. CLONIDINE [Concomitant]
  5. LASIX [Concomitant]
  6. ATENOLOL [Concomitant]
  7. ESTRADIOL [Concomitant]
  8. LOPID [Concomitant]
  9. POTASSIUM CHLORIDE [Concomitant]
  10. ALLOPURINOL [Concomitant]
  11. SOMA [Concomitant]
  12. IMITREX [Concomitant]
  13. ZYRTEC [Concomitant]

REACTIONS (2)
  - BLOOD THYROID STIMULATING HORMONE INCREASED [None]
  - HEADACHE [None]
